FAERS Safety Report 16312105 (Version 2)
Quarter: 2019Q2

REPORT INFORMATION
  Report Type: Report from Study
  Country: None (occurrence: IT)
  Receive Date: 20190515
  Receipt Date: 20190531
  Transmission Date: 20190711
  Serious: Yes (Other)
  Sender: FDA-Public Use
  Company Number: IT-ABBVIE-19S-083-2780556-00

PATIENT
  Age: 73 Year
  Sex: Female

DRUGS (1)
  1. DUODOPA [Suspect]
     Active Substance: CARBIDOPA\LEVODOPA
     Indication: PARKINSON^S DISEASE
     Dosage: MD:7+3 CR: 3,8 ED: 2
     Route: 050
     Dates: start: 20170620, end: 20190528

REACTIONS (3)
  - Gastrointestinal haemorrhage [Not Recovered/Not Resolved]
  - Medical device removal [Unknown]
  - Gastrointestinal stoma complication [Not Recovered/Not Resolved]

NARRATIVE: CASE EVENT DATE: 201905
